FAERS Safety Report 8178016-1 (Version None)
Quarter: 2012Q1

REPORT INFORMATION
  Report Type: 
  Country: None (occurrence: None)
  Receive Date: 20120130
  Receipt Date: 20110709
  Transmission Date: 20120608
  Serious: Yes (Hospitalization)
  Sender: FDA-Public Use
  Company Number: 036975

PATIENT
  Age: 46 Year
  Sex: Female

DRUGS (2)
  1. LEVETIRACETAM [Suspect]
     Indication: EPILEPSY
     Dosage: (1000 MG, 1000MG DAILY ORAL)
     Route: 048
     Dates: start: 20101010
  2. IBUPROFEN TABLETS [Concomitant]

REACTIONS (3)
  - DIZZINESS [None]
  - TEMPOROMANDIBULAR JOINT SYNDROME [None]
  - SOMNOLENCE [None]
